FAERS Safety Report 6011176-7 (Version None)
Quarter: 2008Q4

REPORT INFORMATION
  Report Type: 
  Country: None (occurrence: None)
  Receive Date: 20081218
  Receipt Date: 20081209
  Transmission Date: 20090506
  Serious: Yes (Hospitalization)
  Sender: FDA-Public Use
  Company Number: JP-MERCK-0811USA04070

PATIENT
  Age: 75 Year
  Sex: Male

DRUGS (8)
  1. ZETIA [Suspect]
     Indication: HYPERCHOLESTEROLAEMIA
     Route: 048
     Dates: start: 20080926, end: 20081031
  2. CRESTOR [Concomitant]
     Route: 048
     Dates: start: 20081112
  3. PIPSISSEWA [Concomitant]
     Route: 065
  4. FURSULTIAMINE [Concomitant]
     Route: 065
  5. LEVOGLUTAMIDE AND SODIUM GUALENATE [Concomitant]
     Route: 065
  6. TAMSULOSIN HYDROCHLORIDE [Concomitant]
     Route: 065
  7. TRIAZOLAM [Concomitant]
     Route: 065
  8. ETHYL ICOSAPENTATE [Concomitant]
     Route: 065

REACTIONS (3)
  - BLOOD CREATINE PHOSPHOKINASE INCREASED [None]
  - CHROMATURIA [None]
  - RHABDOMYOLYSIS [None]
